FAERS Safety Report 9871746 (Version 1)
Quarter: 2014Q1

REPORT INFORMATION
  Report Type: Spontaneous
  Country: US (occurrence: US)
  Receive Date: 20140205
  Receipt Date: 20140205
  Transmission Date: 20141002
  Serious: No
  Sender: FDA-Public Use
  Company Number: US-AMGEN-USASP2013033993

PATIENT
  Age: 64 Year
  Sex: Female

DRUGS (4)
  1. NEULASTA [Suspect]
     Indication: PRODUCT USED FOR UNKNOWN INDICATION
     Dosage: UNK
  2. MESNA [Concomitant]
     Indication: SARCOMA
     Dosage: UNK
  3. ADRIAMYCIN                         /00330901/ [Concomitant]
     Indication: SARCOMA
     Dosage: UNK
  4. IFOSFAMIDE [Concomitant]
     Indication: SARCOMA
     Dosage: UNK

REACTIONS (1)
  - Pyrexia [Unknown]
